FAERS Safety Report 7231952-2 (Version None)
Quarter: 2011Q1

REPORT INFORMATION
  Report Type: 
  Country: None (occurrence: None)
  Receive Date: 20110118
  Receipt Date: 20101230
  Transmission Date: 20110831
  Serious: Yes (Hospitalization, Other)
  Sender: FDA-Public Use
  Company Number: FR-WATSON-2010-16754

PATIENT
  Sex: Male

DRUGS (2)
  1. METHYLPREDNISOLONE ACETATE [Concomitant]
     Indication: ASTHMA
  2. ALBUTEROL SULFATE AUTOHALER [Suspect]
     Indication: ASTHMA
     Dosage: 2.5 MG/2.5 ML INHALED
     Route: 055

REACTIONS (2)
  - RESPIRATORY DISORDER [None]
  - OXYGEN SATURATION ABNORMAL [None]
